FAERS Safety Report 5936910-3 (Version None)
Quarter: 2008Q4

REPORT INFORMATION
  Report Type: 
  Country: None (occurrence: None)
  Receive Date: 20081031
  Receipt Date: 20081027
  Transmission Date: 20090506
  Serious: Yes (Hospitalization)
  Sender: FDA-Public Use
  Company Number: DE-WYE-G02444108

PATIENT
  Age: 83 Year
  Sex: Female

DRUGS (14)
  1. VENLAFAXINE HCL [Suspect]
     Indication: DEPRESSION
     Route: 048
     Dates: start: 20051209, end: 20051215
  2. VENLAFAXINE HCL [Suspect]
     Route: 048
     Dates: start: 20051216, end: 20051219
  3. VENLAFAXINE HCL [Suspect]
     Route: 048
     Dates: start: 20051220, end: 20051227
  4. NOVODIGAL [Concomitant]
     Route: 048
  5. ENALAPRIL MALEATE [Concomitant]
     Route: 048
  6. FURORESE [Concomitant]
     Indication: DIURETIC THERAPY
     Route: 048
  7. ZELDOX [Suspect]
     Route: 048
     Dates: start: 20051222
  8. KALINOR [Concomitant]
     Route: 048
  9. GODAMED [Concomitant]
     Indication: ANTIPLATELET THERAPY
     Route: 048
  10. CREON [Concomitant]
     Indication: PROPHYLAXIS
     Route: 048
  11. CIPRALEX [Suspect]
     Route: 048
  12. REMERGIL [Suspect]
     Route: 048
  13. QUILONORM RETARD [Concomitant]
     Route: 048
     Dates: end: 20051228
  14. ARELIX [Concomitant]
     Indication: DIURETIC THERAPY
     Route: 048

REACTIONS (3)
  - ANTIDEPRESSANT DRUG LEVEL INCREASED [None]
  - DEHYDRATION [None]
  - DELIRIUM [None]
